FAERS Safety Report 4695179-0 (Version None)
Quarter: 2005Q2

REPORT INFORMATION
  Report Type: 
  Country: None (occurrence: None)
  Receive Date: 20050614
  Receipt Date: 20050119
  Transmission Date: 20051028
  Serious: No
  Sender: FDA-Public Use
  Company Number: USA050188845

PATIENT
  Sex: Male

DRUGS (4)
  1. CIALIS [Suspect]
     Dosage: 10 MG
  2. CRESTOR [Concomitant]
  3. AVAPRO [Concomitant]
  4. TENORMIN [Concomitant]

REACTIONS (1)
  - DRUG INEFFECTIVE [None]
